FAERS Safety Report 8794950 (Version 26)
Quarter: 2015Q2

REPORT INFORMATION
  Report Type: Report from Study
  Country: CA (occurrence: CA)
  Receive Date: 20120917
  Receipt Date: 20150429
  Transmission Date: 20150821
  Serious: Yes (Hospitalization, Other)
  Sender: FDA-Public Use
  Company Number: CA-ROCHE-1088545

PATIENT
  Age: 54 Year
  Sex: Male
  Weight: 148 kg

DRUGS (13)
  1. CRESTOR [Concomitant]
     Active Substance: ROSUVASTATIN CALCIUM
     Route: 065
     Dates: start: 20120126
  2. MICARDIS [Concomitant]
     Active Substance: TELMISARTAN
     Indication: HYPERTENSION
     Route: 048
  3. METHYLPREDNISOLONE. [Concomitant]
     Active Substance: METHYLPREDNISOLONE
     Route: 042
     Dates: start: 20090519, end: 20110531
  4. ACTEMRA [Suspect]
     Active Substance: TOCILIZUMAB
     Indication: RHEUMATOID ARTHRITIS
     Route: 042
     Dates: start: 20111221, end: 20120612
  5. DIPHENHYDRAMINE HCL [Concomitant]
     Active Substance: DIPHENHYDRAMINE HYDROCHLORIDE
     Route: 048
     Dates: start: 20090519, end: 20110531
  6. ACTEMRA [Suspect]
     Active Substance: TOCILIZUMAB
     Route: 042
     Dates: start: 20120216
  7. TORADOL [Suspect]
     Active Substance: KETOROLAC TROMETHAMINE
     Indication: PAIN MANAGEMENT
     Route: 065
  8. ACTEMRA [Suspect]
     Active Substance: TOCILIZUMAB
     Route: 042
     Dates: start: 20120201
  9. ACTEMRA [Suspect]
     Active Substance: TOCILIZUMAB
     Route: 042
     Dates: start: 20130102
  10. HYDROCHLOROTHIAZIDE. [Concomitant]
     Active Substance: HYDROCHLOROTHIAZIDE
     Indication: HYPERTENSION
     Route: 048
  11. RITUXAN [Suspect]
     Active Substance: RITUXIMAB
     Indication: RHEUMATOID ARTHRITIS
     Route: 042
     Dates: start: 20090519, end: 20110531
  12. KEFLEX [Suspect]
     Active Substance: CEPHALEXIN
     Indication: INFECTION
     Route: 065
     Dates: start: 20140622
  13. ACETAMINOPHEN. [Concomitant]
     Active Substance: ACETAMINOPHEN
     Route: 048
     Dates: start: 20090519, end: 20110531

REACTIONS (37)
  - Abscess [Not Recovered/Not Resolved]
  - Hot flush [Unknown]
  - Oropharyngeal pain [Unknown]
  - Bone pain [Unknown]
  - Weight fluctuation [Unknown]
  - Ear pain [Unknown]
  - Hypotension [Unknown]
  - Blood cholesterol increased [Unknown]
  - No therapeutic response [Unknown]
  - Infection [Recovered/Resolved]
  - Aphthous stomatitis [Not Recovered/Not Resolved]
  - Skin ulcer [Recovered/Resolved]
  - Fatigue [Not Recovered/Not Resolved]
  - Bone fragmentation [Not Recovered/Not Resolved]
  - Nodule [Unknown]
  - Monocyte count increased [Unknown]
  - Drug hypersensitivity [Unknown]
  - Fractured coccyx [Not Recovered/Not Resolved]
  - Joint injury [Unknown]
  - Visual impairment [Unknown]
  - Tinnitus [Recovered/Resolved]
  - Muscle spasms [Recovering/Resolving]
  - Drug effect decreased [Unknown]
  - Cough [Unknown]
  - Pain in extremity [Unknown]
  - Oral herpes [Recovered/Resolved]
  - Bronchitis [Recovering/Resolving]
  - Pain in extremity [Not Recovered/Not Resolved]
  - Haemoglobin increased [Unknown]
  - Fatigue [Unknown]
  - Throat irritation [Unknown]
  - Vertigo [Not Recovered/Not Resolved]
  - Nephrolithiasis [Recovered/Resolved]
  - Ear infection [Unknown]
  - Headache [Unknown]
  - Subcutaneous abscess [Not Recovered/Not Resolved]
  - Liver function test abnormal [Unknown]

NARRATIVE: CASE EVENT DATE: 2012
